FAERS Safety Report 20949210 (Version 3)
Quarter: 2022Q4

REPORT INFORMATION
  Report Type: Spontaneous
  Country: CO (occurrence: CO)
  Receive Date: 20220613
  Receipt Date: 20221208
  Transmission Date: 20230112
  Serious: Yes (Other)
  Sender: FDA-Public Use
  Company Number: CO-PFIZER INC-202200809902

PATIENT
  Age: 65 Year
  Sex: Female

DRUGS (1)
  1. ENBREL [Suspect]
     Active Substance: ETANERCEPT
     Indication: Rheumatoid arthritis
     Dosage: 50 MILLIGRAM, UNSPECIFIED FREQUENCY
     Route: 058
     Dates: start: 2017

REACTIONS (10)
  - Haemorrhage [Recovered/Resolved]
  - Psoriatic arthropathy [Unknown]
  - Gait disturbance [Recovered/Resolved]
  - Product dose omission issue [Recovered/Resolved]
  - Inflammation [Recovered/Resolved]
  - Pain [Recovered/Resolved]
  - Alopecia [Recovered/Resolved]
  - Onychomadesis [Recovered/Resolved]
  - Skin exfoliation [Recovered/Resolved]
  - Condition aggravated [Unknown]

NARRATIVE: CASE EVENT DATE: 20200101
